FAERS Safety Report 23110274 (Version 4)
Quarter: 2024Q1

REPORT INFORMATION
  Report Type: Spontaneous
  Country: DE (occurrence: DE)
  Receive Date: 20231026
  Receipt Date: 20240105
  Transmission Date: 20240410
  Serious: Yes (Death, Hospitalization, Other)
  Sender: FDA-Public Use
  Company Number: None

PATIENT
  Age: 73 Year
  Sex: Female
  Weight: 64 kg

DRUGS (36)
  1. INSULIN LISPRO [Suspect]
     Active Substance: INSULIN LISPRO
     Indication: Diabetes mellitus
     Dosage: 161U-121U-8IU, TID
     Route: 058
     Dates: start: 20010415, end: 20010426
  2. ETILEFRINE [Suspect]
     Active Substance: ETILEFRINE
     Indication: Hypotension
     Dosage: 30 GTT DROPS, 1X; ONCE/SINGLE
     Route: 048
     Dates: start: 20010508, end: 20010508
  3. METOCLOPRAMIDE HYDROCHLORIDE [Suspect]
     Active Substance: METOCLOPRAMIDE HYDROCHLORIDE
     Indication: Nausea
     Dosage: 20 GTT DROPS (20 GTT DROPS; DOSAGE FORM: UNSPECIFIED, 1 AMPULE)
     Route: 048
     Dates: start: 20010508, end: 20010508
  4. CARBIMAZOLE [Suspect]
     Active Substance: CARBIMAZOLE
     Indication: Hyperthyroidism
     Dosage: 5 MG, QD
     Route: 048
  5. HEPARIN CALCIUM [Suspect]
     Active Substance: HEPARIN CALCIUM
     Indication: Thrombosis prophylaxis
     Dosage: 15000 IU, QD; 7500 IU, BID
     Route: 058
     Dates: start: 20010426, end: 20010512
  6. LOPERAMIDE [Suspect]
     Active Substance: LOPERAMIDE
     Indication: Diarrhoea
     Dosage: 1 DF, QD;  ONCE/SINGLE
     Route: 048
     Dates: start: 20010430, end: 20010430
  7. ALFUZOSIN HYDROCHLORIDE [Suspect]
     Active Substance: ALFUZOSIN HYDROCHLORIDE
     Indication: Prophylaxis
     Dosage: 1 DF, QD
     Route: 042
     Dates: start: 20010426, end: 20010505
  8. DEXTROSE [Suspect]
     Active Substance: DEXTROSE\DEXTROSE MONOHYDRATE
     Indication: Parenteral nutrition
     Dosage: 500 MG, QD
     Route: 042
     Dates: start: 20010415, end: 20010505
  9. METHYLPREDNISOLONE SODIUM SUCCINATE [Suspect]
     Active Substance: METHYLPREDNISOLONE SODIUM SUCCINATE
     Indication: Pruritus
     Dosage: 100 MG, QD
     Route: 042
     Dates: start: 20010511, end: 20010511
  10. PANTOPRAZOLE SODIUM [Suspect]
     Active Substance: PANTOPRAZOLE SODIUM
     Indication: Prophylaxis
     Dosage: 20 MG, QD
     Route: 048
     Dates: start: 20010415, end: 20010426
  11. PANTOPRAZOLE SODIUM [Suspect]
     Active Substance: PANTOPRAZOLE SODIUM
     Dosage: 20 MG, QD
     Route: 048
     Dates: start: 20010506
  12. INSULIN HUMAN NOS [Suspect]
     Active Substance: INSULIN HUMAN
     Indication: Parenteral nutrition
     Dosage: UNK UNK, TID; 16IU-12IU-8IU
     Route: 042
     Dates: start: 20010415, end: 20010505
  13. PENTAZOCINE [Suspect]
     Active Substance: PENTAZOCINE
     Indication: Pain
     Dosage: 1 DF, ONCE/SINGLE
     Route: 042
     Dates: start: 20010508, end: 20010508
  14. OMEPRAZOLE [Suspect]
     Active Substance: OMEPRAZOLE
     Indication: Peptic ulcer
     Dosage: 1 DF, QD
     Route: 042
     Dates: start: 20010426, end: 20010505
  15. OMEPRAZOLE [Suspect]
     Active Substance: OMEPRAZOLE
     Indication: Prophylaxis
     Dosage: UNK, QD
     Route: 042
     Dates: start: 20010508, end: 20010508
  16. CIPROFLOXACIN HYDROCHLORIDE\HYDROCORTISONE [Suspect]
     Active Substance: CIPROFLOXACIN HYDROCHLORIDE\HYDROCORTISONE
     Indication: Cholangitis
     Dosage: 1000 MG, QD; DAILY DOSE: 1000 MG MILLIGRAM(S) EVERY DAY
     Route: 048
     Dates: start: 20010415, end: 20010426
  17. PREDNISOLONE SODIUM SUCCINATE [Suspect]
     Active Substance: PREDNISOLONE SODIUM SUCCINATE
     Indication: Pruritus
     Dosage: 100 MG; DOSAGE FORM: UNSPECIFIED
     Route: 042
     Dates: start: 20010511, end: 20010511
  18. DIMETHINDENE [Suspect]
     Active Substance: DIMETHINDENE
     Indication: Pruritus
     Dosage: 1 DF, QD
     Route: 048
     Dates: start: 200104
  19. CIPROFLOXACIN HYDROCHLORIDE\HYDROCORTISONE [Suspect]
     Active Substance: CIPROFLOXACIN HYDROCHLORIDE\HYDROCORTISONE
     Indication: Cholangitis
     Dosage: 1 DF, QD
     Route: 042
     Dates: start: 20010426, end: 20010501
  20. ASPIRIN\CLOPIDOGREL BISULFATE [Suspect]
     Active Substance: ASPIRIN\CLOPIDOGREL BISULFATE
     Indication: Cholangitis
     Dosage: 400 MG, BID
     Route: 048
     Dates: start: 20010415, end: 20010426
  21. MEZLOCILLIN SODIUM [Suspect]
     Active Substance: MEZLOCILLIN SODIUM
     Indication: Cholangitis
     Dosage: 6 G, QD; DAILY DOSE: 6 G GRAM(S) EVERY DAY
     Route: 042
     Dates: start: 20010428, end: 20010501
  22. AMINO ACIDS\DEXTROSE\ELECTROLYTES NOS [Suspect]
     Active Substance: AMINO ACIDS\DEXTROSE\ELECTROLYTES NOS
     Indication: Parenteral nutrition
     Dosage: 500 ML, QD
     Route: 042
     Dates: start: 20010415, end: 20010427
  23. AMINO ACIDS\DEXTROSE\ELECTROLYTES NOS [Suspect]
     Active Substance: AMINO ACIDS\DEXTROSE\ELECTROLYTES NOS
     Dosage: 500 ML QD
     Route: 042
     Dates: start: 20010415, end: 20010427
  24. DIMENHYDRINATE [Suspect]
     Active Substance: DIMENHYDRINATE
     Indication: Nausea
     Dosage: 1 DF, 1X; ONCE/SINGLE
     Route: 042
     Dates: start: 20010508, end: 20010508
  25. DIMETHINDENE [Suspect]
     Active Substance: DIMETHINDENE
     Indication: Pruritus
     Dosage: UNK; DOSAGE FORM: AMPOULES, 1 AMPULE
     Route: 042
     Dates: start: 20010511, end: 20010512
  26. DIMETHINDENE [Suspect]
     Active Substance: DIMETHINDENE
     Indication: Pruritus
     Dosage: UNK, QD
     Dates: start: 20010511, end: 20010511
  27. ALDACTONE [Suspect]
     Active Substance: SPIRONOLACTONE
     Indication: Oedema
     Dosage: 100 MG, QD
     Route: 048
     Dates: start: 20010415, end: 20010425
  28. ASPIRIN\CLOPIDOGREL BISULFATE [Suspect]
     Active Substance: ASPIRIN\CLOPIDOGREL BISULFATE
     Indication: Cholangitis
     Dosage: 800 MG, QD; DAILY DOSE: 800 MG MILLIGRAM(S) EVERY DAY
     Route: 042
     Dates: start: 20010426, end: 20010501
  29. HYMECROMONE [Suspect]
     Active Substance: HYMECROMONE
     Indication: Cholelithiasis
     Dosage: 1 DF, QD
     Route: 042
     Dates: start: 20010510
  30. KALIUMKLORID [Concomitant]
     Indication: Hypokalaemia
     Dosage: UNK
     Route: 042
     Dates: start: 20010426, end: 20010501
  31. POTASSIUM CHLORIDE [Concomitant]
     Active Substance: POTASSIUM CHLORIDE
     Indication: Hypokalaemia
     Dosage: 1 DF, QD
     Route: 048
     Dates: start: 20010506
  32. JONOSTERIL [CALCIUM ACETATE;MAGNESIUM ACETATE TETRAHYDRATE;POTASSIUM A [Concomitant]
     Dosage: 250 ML, QD; 250ML/DAY
     Route: 042
     Dates: start: 20010415, end: 20010505
  33. JONOSTERIL [CALCIUM ACETATE;MAGNESIUM ACETATE TETRAHYDRATE;POTASSIUM A [Concomitant]
     Dates: start: 20010415, end: 20010505
  34. SODIUM CHLORIDE [Concomitant]
     Active Substance: SODIUM CHLORIDE
     Indication: Product used for unknown indication
     Dosage: 100 ML, QD
     Route: 042
     Dates: start: 20010508, end: 20010508
  35. SODIUM CHLORIDE [Concomitant]
     Active Substance: SODIUM CHLORIDE
     Dosage: 100 ML, TOTAL
     Route: 042
     Dates: start: 20010508, end: 20010508
  36. POTASSIUM CHLORIDE [Concomitant]
     Active Substance: POTASSIUM CHLORIDE
     Indication: Hypokalaemia
     Dosage: UNK
     Route: 042
     Dates: start: 20010426, end: 20010501

REACTIONS (11)
  - Circulatory collapse [Fatal]
  - Cardiac arrest [Fatal]
  - Toxic epidermal necrolysis [Fatal]
  - Stevens-Johnson syndrome [Fatal]
  - Conjunctivitis [Unknown]
  - Lip erosion [Unknown]
  - Pruritus [Unknown]
  - Rash [Unknown]
  - Skin exfoliation [Unknown]
  - Skin lesion [Unknown]
  - Blister [Unknown]

NARRATIVE: CASE EVENT DATE: 20010511
